FAERS Safety Report 6263231-4 (Version None)
Quarter: 2009Q3

REPORT INFORMATION
  Report Type: 
  Country: None (occurrence: None)
  Receive Date: 20090710
  Receipt Date: 20090701
  Transmission Date: 20100115
  Serious: Yes (Hospitalization)
  Sender: FDA-Public Use
  Company Number: FR-JNJFOC-20090701142

PATIENT
  Sex: Male

DRUGS (4)
  1. NIZORAL [Suspect]
     Indication: HYPERADRENOCORTICISM
     Dosage: EVERY 3 DAYS
     Route: 048
  2. MODAMIDE [Suspect]
     Route: 048
  3. MODAMIDE [Suspect]
     Route: 048
  4. MODAMIDE [Suspect]
     Indication: HYPOKALAEMIA
     Route: 048

REACTIONS (1)
  - CHOLESTASIS [None]
